FAERS Safety Report 16708736 (Version 1)
Quarter: 2019Q3

REPORT INFORMATION
  Report Type: Spontaneous
  Country: CA (occurrence: CA)
  Receive Date: 20190816
  Receipt Date: 20190816
  Transmission Date: 20191004
  Serious: Yes (Other)
  Sender: FDA-Public Use
  Company Number: CA-ROCHE-2382003

PATIENT
  Age: 51 Year
  Sex: Male

DRUGS (1)
  1. XOLAIR [Suspect]
     Active Substance: OMALIZUMAB
     Indication: PRODUCT USED FOR UNKNOWN INDICATION
     Route: 065

REACTIONS (8)
  - Hypersensitivity [Unknown]
  - Nasal congestion [Unknown]
  - Eye swelling [Unknown]
  - Body temperature increased [Recovered/Resolved]
  - Nasal discharge discolouration [Unknown]
  - Rhinorrhoea [Unknown]
  - Visual impairment [Recovered/Resolved]
  - Sneezing [Unknown]

NARRATIVE: CASE EVENT DATE: 20190801
